FAERS Safety Report 17016395 (Version 1)
Quarter: 2019Q4

REPORT INFORMATION
  Report Type: Spontaneous
  Country: US (occurrence: US)
  Receive Date: 20191003
  Receipt Date: 20191003
  Transmission Date: 20200122
  Serious: Yes (Hospitalization)
  Sender: FDA-Public Use
  Company Number: None

PATIENT
  Age: 48 Year
  Sex: Female
  Weight: 52.16 kg

DRUGS (9)
  1. EVENING PRIMROSE OIL [Concomitant]
     Active Substance: EVENING PRIMROSE OIL\HERBALS
  2. COQ10 [Concomitant]
     Active Substance: UBIDECARENONE
  3. CHELATED [Concomitant]
  4. AIMOVIG [Suspect]
     Active Substance: ERENUMAB-AOOE
     Indication: MIGRAINE
     Dosage: ?          QUANTITY:70 MG MILLIGRAM(S);?
     Dates: start: 20190329, end: 20190822
  5. TURMERIC SUPREME [Concomitant]
  6. RELPAX [Concomitant]
     Active Substance: ELETRIPTAN HYDROBROMIDE
  7. VITAMIN D-3 K-2 [Concomitant]
  8. PROBIOTIC 20BILLION CFU [Concomitant]
  9. OMEGA 3 FISH OIL [Concomitant]
     Active Substance: FISH OIL\OMEGA-3 FATTY ACIDS

REACTIONS (17)
  - Peripheral swelling [None]
  - Tenderness [None]
  - Pain in extremity [None]
  - Muscle spasms [None]
  - White blood cell count increased [None]
  - Hyperaesthesia [None]
  - Musculoskeletal stiffness [None]
  - Discomfort [None]
  - Muscle rigidity [None]
  - Musculoskeletal disorder [None]
  - Sleep disorder [None]
  - Weight bearing difficulty [None]
  - Gait disturbance [None]
  - Feeling abnormal [None]
  - Neuropathy peripheral [None]
  - Inflammation [None]
  - Abdominal pain upper [None]

NARRATIVE: CASE EVENT DATE: 20190903
